FAERS Safety Report 21535111 (Version 1)
Quarter: 2022Q4

REPORT INFORMATION
  Report Type: Spontaneous
  Country: US (occurrence: US)
  Receive Date: 20221101
  Receipt Date: 20221101
  Transmission Date: 20230113
  Serious: No
  Sender: FDA-Public Use
  Company Number: US-BRISTOL-MYERS SQUIBB COMPANY-2022-129782

PATIENT
  Age: 57 Year
  Sex: Male

DRUGS (1)
  1. REVLIMID [Suspect]
     Active Substance: LENALIDOMIDE
     Indication: Milk allergy
     Dosage: FREQUENCY:TAKE 1 CAPSULE BY MOUTH EVERYDAY IN THE MORNING.
     Route: 048
     Dates: start: 20140317

REACTIONS (1)
  - Intentional product use issue [Unknown]
